FAERS Safety Report 8366582-2 (Version None)
Quarter: 2012Q2

REPORT INFORMATION
  Report Type: 
  Country: None (occurrence: None)
  Receive Date: 20120516
  Receipt Date: 20120516
  Transmission Date: 20120825
  Serious: Yes (Other)
  Sender: FDA-Public Use
  Company Number: None

PATIENT
  Age: 60 Year
  Sex: Female
  Weight: 95.2554 kg

DRUGS (2)
  1. DONEPEZIL HCL [Suspect]
     Indication: BRAIN INJURY
     Dosage: 10MG 1 X DAY ORAL EARLY APRIL 2012
     Route: 048
  2. DONEPEZIL HCL [Suspect]
     Indication: DEMENTIA
     Dosage: 10MG 1 X DAY ORAL EARLY APRIL 2012
     Route: 048

REACTIONS (6)
  - INITIAL INSOMNIA [None]
  - INSOMNIA [None]
  - DIZZINESS [None]
  - PRODUCT SUBSTITUTION ISSUE [None]
  - PRODUCT QUALITY ISSUE [None]
  - VISUAL FIELD DEFECT [None]
